FAERS Safety Report 15180303 (Version 1)
Quarter: 2018Q3

REPORT INFORMATION
  Report Type: Report from Study
  Country: US (occurrence: US)
  Receive Date: 20180723
  Receipt Date: 20180723
  Transmission Date: 20181010
  Serious: Yes (Other)
  Sender: FDA-Public Use
  Company Number: US-EMD SERONO-E2B_90049356

PATIENT
  Age: 61 Year
  Sex: Male

DRUGS (1)
  1. REBIF [Suspect]
     Active Substance: INTERFERON BETA-1A
     Indication: PRODUCT USED FOR UNKNOWN INDICATION
     Route: 058
     Dates: start: 20151021, end: 201806

REACTIONS (4)
  - Lymphoma [Unknown]
  - Headache [Unknown]
  - Thyroid cancer [Unknown]
  - Sinus congestion [Unknown]

NARRATIVE: CASE EVENT DATE: 201806
